FAERS Safety Report 9247357 (Version 1)
Quarter: 2013Q2

REPORT INFORMATION
  Report Type: Spontaneous
  Country: CN (occurrence: CN)
  Receive Date: 20130423
  Receipt Date: 20130423
  Transmission Date: 20140414
  Serious: Yes (Death, Life-Threatening)
  Sender: FDA-Public Use
  Company Number: CN-JNJFOC-20130410818

PATIENT
  Sex: 0

DRUGS (6)
  1. ITRACONAZOLE [Suspect]
     Indication: ANTIFUNGAL PROPHYLAXIS
     Dosage: 1 DAY BEFORE OR 48 HOURS AFTER
     Route: 042
  2. VORICONAZOLE [Interacting]
     Indication: ANTIFUNGAL PROPHYLAXIS
     Route: 048
  3. CYCLOSPORINE A [Interacting]
     Indication: TRANSPLANT
     Dosage: 2 DIVIDED DOSES; ON??THE DAY BEFORE TRANSPLANTATION BY INTRAVENOUS INFUSION (DAY- 1)
     Route: 042
  4. CYCLOSPORINE A [Interacting]
     Indication: TRANSPLANT
     Route: 042
  5. VORICONAZOLE [Interacting]
     Indication: ANTIFUNGAL PROPHYLAXIS
     Route: 042
  6. VORICONAZOLE [Interacting]
     Indication: ANTIFUNGAL PROPHYLAXIS
     Route: 042

REACTIONS (3)
  - Pulmonary alveolar haemorrhage [Fatal]
  - Acute graft versus host disease in skin [Fatal]
  - Drug interaction [Fatal]
